FAERS Safety Report 5978459-8 (Version None)
Quarter: 2008Q4

REPORT INFORMATION
  Report Type: 
  Country: None (occurrence: None)
  Receive Date: 20081125
  Receipt Date: 20081112
  Transmission Date: 20090506
  Serious: Yes (Other)
  Sender: FDA-Public Use
  Company Number: DSU-2008-00622

PATIENT
  Age: 66 Year
  Sex: Female
  Weight: 46 kg

DRUGS (5)
  1. OLMESARTAN MEDOXOMIL [Suspect]
     Indication: HYPERTENSION
     Dosage: 40 MG (40 MG,QD), PER ORAL
     Route: 048
     Dates: start: 20080219, end: 20080401
  2. ACETYLSALICYLIC ACID (ACETYLSALICYLIC ACID)(100 MILLIGRAM, TABLET)(ACE [Concomitant]
  3. DIGOXINE (DIGOXIN) (TABLET)(DIGOXIN) [Concomitant]
  4. FUROSEMIDE (FUROSEMIDE) (40 MILLIGRAM, TABLET)(FUROSEMIDE) [Concomitant]
  5. DIAZEPAM (DIAZEPAM) (10 MILLIGRAM, TABLET (DIAZEPAM) [Concomitant]

REACTIONS (16)
  - AGORAPHOBIA [None]
  - ANOREXIA [None]
  - ARRHYTHMIA [None]
  - BONE PAIN [None]
  - CARDIOMEGALY [None]
  - COUGH [None]
  - DIARRHOEA [None]
  - FEEDING DISORDER [None]
  - HYPERTENSION [None]
  - HYPOPHAGIA [None]
  - MUSCLE SPASMS [None]
  - NAUSEA [None]
  - PAIN [None]
  - SLEEP DISORDER [None]
  - SOMNOLENCE [None]
  - SYNCOPE [None]
